FAERS Safety Report 5712339-8 (Version None)
Quarter: 2008Q2

REPORT INFORMATION
  Report Type: 
  Country: None (occurrence: None)
  Receive Date: 20080421
  Receipt Date: 20080421
  Transmission Date: 20081010
  Serious: Yes (Hospitalization)
  Sender: FDA-Public Use
  Company Number: None

PATIENT
  Age: 67 Year
  Sex: Male
  Weight: 84.7 kg

DRUGS (3)
  1. CISPLATIN [Suspect]
     Indication: PHARYNGEAL CANCER STAGE UNSPECIFIED
     Dosage: 215 MG EVERY 21 DAYS  IV DRIP
     Route: 041
     Dates: start: 20080320, end: 20080320
  2. DOCETAXEL [Suspect]
     Indication: PHARYNGEAL CANCER STAGE UNSPECIFIED
     Dosage: 160 MG EVERY 21 DAYS IV DRIP
     Route: 041
     Dates: start: 20080320, end: 20080320
  3. FLUOROURACIL [Concomitant]

REACTIONS (3)
  - DEHYDRATION [None]
  - DIARRHOEA [None]
  - FEBRILE NEUTROPENIA [None]
